FAERS Safety Report 22169178 (Version 1)
Quarter: 2023Q2

REPORT INFORMATION
  Report Type: Report from Study
  Country: FR (occurrence: FR)
  Receive Date: 20230404
  Receipt Date: 20230404
  Transmission Date: 20230722
  Serious: Yes (Death, Other)
  Sender: FDA-Public Use
  Company Number: FR-PFIZER INC-2021619082

PATIENT
  Age: 17 Year
  Sex: Female

DRUGS (16)
  1. DOXORUBICIN [Suspect]
     Active Substance: DOXORUBICIN
     Indication: Product used for unknown indication
     Dosage: 60 MILLIGRAM/SQ. METER(60 MG/M2/DAY ON DAY 2, CONSECUTIVE COURSE, COPADM 1)
     Route: 065
  2. DOXORUBICIN [Suspect]
     Active Substance: DOXORUBICIN
     Dosage: 60 MILLIGRAM/SQ. METER(60 MG/M2/DAY ON DAY 2, MAINTENANCE)
     Route: 065
  3. PREDNISONE [Suspect]
     Active Substance: PREDNISONE
     Indication: Product used for unknown indication
     Dosage: 60 MILLIGRAM/SQ. METER(60 MG/M2/DAY FROM DAY 1 TO DAY 7, CYTOREDUCTIVE PHASE)
     Route: 065
  4. PREDNISONE [Suspect]
     Active Substance: PREDNISONE
     Dosage: 60 MILLIGRAM/SQ. METER(60 MG/M2 FROM DAY 1 TO DAY 5, MAINTENANCE)
     Route: 065
  5. PREDNISONE [Suspect]
     Active Substance: PREDNISONE
     Dosage: 60 MILLIGRAM/SQ. METER(60 MG/M2/DAY FROM DAY 1 TO DAY 7, CONSECUTIVE COURSE, COPADM 1)
     Route: 065
  6. VINCRISTINE SULFATE [Suspect]
     Active Substance: VINCRISTINE SULFATE
     Indication: Product used for unknown indication
     Dosage: 2 MILLIGRAM(2 MG/DAY ON DAY 1, CYTOREDUCTIVE PHASE)
     Route: 065
  7. VINCRISTINE SULFATE [Suspect]
     Active Substance: VINCRISTINE SULFATE
     Dosage: 2 MILLIGRAM(2 MG/DAY ON DAY 1 AND DAY 6, CONSECUTIVE COURSE, COPADM 2)
     Route: 065
  8. VINCRISTINE SULFATE [Suspect]
     Active Substance: VINCRISTINE SULFATE
     Dosage: 2 MILLIGRAM(2 MG/DAY ON DAY 1, CONSECUTIVE COURSE, COPADM 1)
     Route: 065
  9. VINCRISTINE SULFATE [Suspect]
     Active Substance: VINCRISTINE SULFATE
     Dosage: (2 MG/DAY ON DAY 1, MAINTENANCE)
     Route: 065
  10. CYCLOPHOSPHAMIDE [Suspect]
     Active Substance: CYCLOPHOSPHAMIDE
     Indication: Product used for unknown indication
     Dosage: 500 MILLIGRAM/SQ. METER(500 MG/M2/DAY FROM DAY 2 TO DAY 4, CONSECUTIVE COURSE, COPADM 1)
     Route: 065
  11. CYCLOPHOSPHAMIDE [Suspect]
     Active Substance: CYCLOPHOSPHAMIDE
     Dosage: 300 MILLIGRAM/SQ. METER(300 MG/M2/DAY ON DAY 1, CYTOREDUCTIVE PHASE)
     Route: 065
  12. CYCLOPHOSPHAMIDE [Suspect]
     Active Substance: CYCLOPHOSPHAMIDE
     Dosage: 1000 MILLIGRAM/SQ. METER(1000 MG/M2/DAY FROM DAY 2 TO DAY 4, CONSECUTIVE COURSE,  COPADM 2)
     Route: 065
  13. CYCLOPHOSPHAMIDE [Suspect]
     Active Substance: CYCLOPHOSPHAMIDE
     Dosage: 500 MILLIGRAM/SQ. METER(500 MG/M2/DAY ON DAY 1 AND DAY 2, MAINTENANCE)
     Route: 065
  14. METHOTREXATE SODIUM [Suspect]
     Active Substance: METHOTREXATE SODIUM
     Indication: Product used for unknown indication
     Dosage: UNK(3 G/M2/DAY ON DAY 1,  CONSOLIDATION PHASE)
     Route: 065
  15. METHOTREXATE SODIUM [Suspect]
     Active Substance: METHOTREXATE SODIUM
     Dosage: UNK(3 G/M2/DAY ON DAY 1, CONSECUTIVE COURSE, COPADM 1)
     Route: 065
  16. CYTARABINE [Suspect]
     Active Substance: CYTARABINE
     Indication: Product used for unknown indication
     Dosage: 100 MILLIGRAM/SQ. METER(100 MG/M2/DAY FROM DAY 1 TO DAY 5 (24-H INFUSION), CONSOLIDATION PHASE)
     Route: 065

REACTIONS (1)
  - Death [Fatal]
